FAERS Safety Report 8557761-X (Version None)
Quarter: 2012Q3

REPORT INFORMATION
  Report Type: 
  Country: None (occurrence: None)
  Receive Date: 20120801
  Receipt Date: 20120723
  Transmission Date: 20120928
  Serious: Yes (Hospitalization)
  Sender: FDA-Public Use
  Company Number: HR-ASTRAZENECA-2012SE51477

PATIENT
  Age: 76 Year
  Sex: Female

DRUGS (2)
  1. CHEMOTHERAPY [Concomitant]
  2. ANASTROZOLE [Suspect]
     Indication: BREAST NEOPLASM
     Route: 048

REACTIONS (3)
  - TENOSYNOVITIS [None]
  - ARTHRITIS REACTIVE [None]
  - FASCIITIS [None]
